FAERS Safety Report 23789124 (Version 2)
Quarter: 2024Q2

REPORT INFORMATION
  Report Type: Spontaneous
  Country: US (occurrence: None)
  Receive Date: 20240426
  Receipt Date: 20240618
  Transmission Date: 20240716
  Serious: Yes (Other)
  Sender: FDA-Public Use
  Company Number: 2024A095663

PATIENT
  Sex: Male

DRUGS (1)
  1. SAPHNELO [Suspect]
     Active Substance: ANIFROLUMAB\ANIFROLUMAB-FNIA
     Route: 042

REACTIONS (7)
  - Seizure [Unknown]
  - Transient ischaemic attack [Unknown]
  - Laboratory test abnormal [Unknown]
  - Malaise [Unknown]
  - Systemic lupus erythematosus [Unknown]
  - Magnetic resonance imaging abnormal [Unknown]
  - Neurological symptom [Unknown]
